FAERS Safety Report 21238324 (Version 1)
Quarter: 2022Q3

REPORT INFORMATION
  Report Type: Spontaneous
  Country: US (occurrence: US)
  Receive Date: 20220822
  Receipt Date: 20220822
  Transmission Date: 20221026
  Serious: Yes (Other)
  Sender: FDA-Public Use
  Company Number: US-PFIZER INC-PV202200046327

PATIENT
  Age: 62 Year
  Sex: Male

DRUGS (3)
  1. XELJANZ [Suspect]
     Active Substance: TOFACITINIB CITRATE
     Dosage: UNK
  2. XELJANZ [Suspect]
     Active Substance: TOFACITINIB CITRATE
     Dosage: UNK
     Dates: start: 20220803
  3. RINVOQ [Concomitant]
     Active Substance: UPADACITINIB
     Dosage: UNK
     Dates: end: 20220803

REACTIONS (8)
  - Neutropenia [Unknown]
  - Angina pectoris [Unknown]
  - Haemoglobin decreased [Unknown]
  - Anaemia [Unknown]
  - Dyspnoea [Unknown]
  - Dizziness [Unknown]
  - Aspartate aminotransferase increased [Recovered/Resolved]
  - Alanine aminotransferase increased [Recovered/Resolved]

NARRATIVE: CASE EVENT DATE: 20220601
